FAERS Safety Report 10622490 (Version 1)
Quarter: 2014Q4

REPORT INFORMATION
  Report Type: Spontaneous
  Country: US (occurrence: None)
  Receive Date: 20141202
  Receipt Date: 20141202
  Transmission Date: 20150529
  Serious: Yes (Death, Other)
  Sender: FDA-Public Use
  Company Number: None

PATIENT
  Age: 65 Year
  Sex: Female
  Weight: 58.97 kg

DRUGS (1)
  1. REVLIMID [Suspect]
     Active Substance: LENALIDOMIDE
     Indication: PLASMA CELL MYELOMA
     Dosage: 1, ONCE DAILY, TAKEN BY MOUTH
     Route: 048

REACTIONS (3)
  - Myocardial infarction [None]
  - Cardiac arrest [None]
  - Cardiac failure [None]

NARRATIVE: CASE EVENT DATE: 20141026
